FAERS Safety Report 9933124 (Version 1)
Quarter: 2014Q1

REPORT INFORMATION
  Report Type: Spontaneous
  Country: US (occurrence: US)
  Receive Date: 20140228
  Receipt Date: 20140228
  Transmission Date: 20141002
  Serious: Yes (Hospitalization)
  Sender: FDA-Public Use
  Company Number: US-GLAXOSMITHKLINE-A1050034A

PATIENT
  Age: 52 Year
  Sex: Female

DRUGS (3)
  1. LAMICTAL [Suspect]
     Indication: NERVOUS SYSTEM DISORDER
     Route: 065
     Dates: start: 20100930
  2. ADVAIR HFA [Suspect]
     Indication: RESPIRATORY DISORDER
     Route: 065
     Dates: start: 20100930
  3. VENTOLIN [Suspect]
     Indication: RESPIRATORY DISORDER
     Dosage: 90MCG UNKNOWN
     Route: 065
     Dates: start: 20130402

REACTIONS (2)
  - Investigation [Unknown]
  - Malaise [Unknown]
